FAERS Safety Report 15789109 (Version 1)
Quarter: 2019Q1

REPORT INFORMATION
  Report Type: Spontaneous
  Country: US (occurrence: US)
  Receive Date: 20190103
  Receipt Date: 20190103
  Transmission Date: 20190417
  Serious: No
  Sender: FDA-Public Use
  Company Number: None

PATIENT
  Age: 64 Year
  Sex: Male
  Weight: 100.8 kg

DRUGS (13)
  1. BUPROPION. [Concomitant]
     Active Substance: BUPROPION
  2. VITAMIN B12 [Concomitant]
     Active Substance: CYANOCOBALAMIN
  3. FISH OIL [Concomitant]
     Active Substance: FISH OIL
  4. CHOLESTOFF [Concomitant]
  5. DULOXETINE. [Concomitant]
     Active Substance: DULOXETINE
  6. HYDROXYZINE [Concomitant]
     Active Substance: HYDROXYZINE HYDROCHLORIDE
  7. METFORMIN HCL TAB 500 MG [Suspect]
     Active Substance: METFORMIN HYDROCHLORIDE
     Indication: GLUCOSE TOLERANCE IMPAIRED
     Dosage: ?          QUANTITY:0.5 TABLET(S);?
     Route: 048
     Dates: start: 20181222, end: 20190101
  8. CARVEDILOL. [Concomitant]
     Active Substance: CARVEDILOL
  9. D-3 [Concomitant]
     Active Substance: CHOLECALCIFEROL
  10. MULTIVITAMIN [Concomitant]
     Active Substance: VITAMINS
  11. ASPIRIN. [Concomitant]
     Active Substance: ASPIRIN
  12. PROBIOTIC 10 [Concomitant]
  13. ROSUVASTATIN. [Concomitant]
     Active Substance: ROSUVASTATIN

REACTIONS (1)
  - Suicidal ideation [None]

NARRATIVE: CASE EVENT DATE: 20190101
